FAERS Safety Report 5672375-7 (Version None)
Quarter: 2008Q1

REPORT INFORMATION
  Report Type: 
  Country: None (occurrence: None)
  Receive Date: 20080319
  Receipt Date: 20080311
  Transmission Date: 20080703
  Serious: Yes (Hospitalization)
  Sender: FDA-Public Use
  Company Number: PHHO2008CA02147

PATIENT
  Age: 60 Year
  Sex: Female

DRUGS (4)
  1. FEMARA [Suspect]
     Indication: BREAST CANCER
     Dosage: 2.5 MG, QD
     Route: 048
     Dates: start: 20030729
  2. CALCIUM [Concomitant]
  3. VITAMIN D [Concomitant]
  4. ZOLEDRONIC ACID [Suspect]
     Indication: BREAST CANCER
     Dosage: 4MG EVERY 6 MONTHS
     Route: 042
     Dates: start: 20030729

REACTIONS (6)
  - FALL [None]
  - FIBULA FRACTURE [None]
  - FRACTURE TREATMENT [None]
  - OPEN REDUCTION OF FRACTURE [None]
  - OSTEOPENIA [None]
  - TIBIA FRACTURE [None]
